FAERS Safety Report 9705972 (Version 2)
Quarter: 2013Q4

REPORT INFORMATION
  Report Type: Spontaneous
  Country: DK (occurrence: DK)
  Receive Date: 20131122
  Receipt Date: 20131203
  Transmission Date: 20140711
  Serious: Yes (Other)
  Sender: FDA-Public Use
  Company Number: DK-GLAXOSMITHKLINE-B0946900A

PATIENT
  Sex: Female
  Weight: 11.2 kg

DRUGS (2)
  1. SERETIDE [Suspect]
     Indication: ASTHMA
     Dosage: 1PUFF TWICE PER DAY
     Route: 055
     Dates: start: 20130114
  2. AVAMYS [Concomitant]
     Indication: RHINITIS
     Dates: start: 20110420

REACTIONS (4)
  - Unresponsive to stimuli [Recovered/Resolved]
  - Trance [Recovered/Resolved]
  - Abnormal behaviour [Recovered/Resolved]
  - Aggression [Recovered/Resolved]
